FAERS Safety Report 7200451-6 (Version None)
Quarter: 2010Q4

REPORT INFORMATION
  Report Type: 
  Country: None (occurrence: None)
  Receive Date: 20101228
  Receipt Date: 20101220
  Transmission Date: 20110411
  Serious: Yes (Life-Threatening, Hospitalization)
  Sender: FDA-Public Use
  Company Number: FR-GENZYME-POMP-1001261

PATIENT
  Sex: Male
  Weight: 74 kg

DRUGS (5)
  1. MYOZYME [Suspect]
     Indication: GLYCOGEN STORAGE DISEASE TYPE II
     Dosage: 1450 MG, Q2W
     Route: 042
     Dates: start: 20091127
  2. ZESTRIL [Concomitant]
     Indication: HYPERTENSION
     Dosage: 20 MG, QD
     Route: 065
  3. AVLOCARDYL [Concomitant]
     Indication: HYPERTENSION
     Dosage: 40 MG, QD
     Route: 065
  4. OMIX [Concomitant]
     Indication: PRODUCT USED FOR UNKNOWN INDICATION
     Dosage: 1 UNK, QD
     Route: 065
  5. PANTOPRAZOLE [Concomitant]
     Indication: ULCER
     Dosage: 40 MG, QD
     Route: 065

REACTIONS (1)
  - MYOCARDIAL INFARCTION [None]
